FAERS Safety Report 8096806-0 (Version None)
Quarter: 2012Q1

REPORT INFORMATION
  Report Type: 
  Country: None (occurrence: None)
  Receive Date: 20120129
  Receipt Date: 20111202
  Transmission Date: 20120608
  Serious: No
  Sender: FDA-Public Use
  Company Number: US-ABBOTT-11P-163-0880435-00

PATIENT
  Age: 65 Year
  Sex: Female

DRUGS (12)
  1. VITAMIN D [Concomitant]
     Indication: PRODUCT USED FOR UNKNOWN INDICATION
  2. CLARITIN [Concomitant]
     Indication: HYPERSENSITIVITY
  3. SALMON OIL OTC [Concomitant]
     Indication: PRODUCT USED FOR UNKNOWN INDICATION
  4. AMBIEN [Concomitant]
     Indication: INSOMNIA
     Dosage: AT BEDTIME
  5. HUMIRA [Suspect]
     Indication: ANKYLOSING SPONDYLITIS
     Dates: start: 20111013
  6. ESTRACE [Concomitant]
     Indication: HORMONE REPLACEMENT THERAPY
  7. ESTRACE [Concomitant]
     Indication: BACK DISORDER
  8. ESTRACE [Concomitant]
     Indication: INSOMNIA
  9. JUICE PLUS [Concomitant]
     Indication: PRODUCT USED FOR UNKNOWN INDICATION
     Dosage: DEHYDRATED FRUITS AND VEG
  10. IBUPROFEN (ADVIL) [Concomitant]
     Indication: PAIN
  11. BENADRYL [Concomitant]
     Indication: HYPERSENSITIVITY
  12. ORGANIC SUPPLEMENT [Concomitant]
     Indication: PRODUCT USED FOR UNKNOWN INDICATION

REACTIONS (1)
  - URINARY TRACT INFECTION [None]
